FAERS Safety Report 24613596 (Version 1)
Quarter: 2024Q4

REPORT INFORMATION
  Report Type: Spontaneous
  Country: US (occurrence: US)
  Receive Date: 20241113
  Receipt Date: 20241113
  Transmission Date: 20250114
  Serious: No
  Sender: SAREPTA THERAPEUTICS
  Company Number: US-SAREPTA THERAPEUTICS INC.-SRP2024-004993

PATIENT
  Sex: Male
  Weight: 20 kg

DRUGS (8)
  1. ELEVIDYS [Suspect]
     Active Substance: DELANDISTROGENE MOXEPARVOVEC-ROKL
     Indication: Duchenne muscular dystrophy
     Dosage: 200 MILLILITER, 100 ML/HR OVER 120 MINUTESSINGLE
     Route: 042
     Dates: start: 20240812, end: 20240812
  2. TUMS [Concomitant]
     Active Substance: CALCIUM CARBONATE
     Indication: Product used for unknown indication
     Dosage: 500 MILLIGRAM, BID, IN THE MORNING AND EVENING
     Route: 048
  3. VITAMIN D3 [Concomitant]
     Active Substance: CHOLECALCIFEROL
     Indication: Product used for unknown indication
     Dosage: 2000 INTERNATIONAL UNIT, QD
     Route: 048
  4. PEPCID [Concomitant]
     Active Substance: FAMOTIDINE
     Indication: Prophylaxis
     Dosage: 1.2 MILLILITER, BID, IN THE MORNING AND EVENING
     Route: 048
  5. PRELONE [Concomitant]
     Active Substance: PREDNISOLONE
     Indication: Product used for unknown indication
     Dosage: 100 MG, 34 MILLILITER, EVERY SATURDAY AND SUNDAY AT 10AM
     Route: 048
  6. PRELONE [Concomitant]
     Active Substance: PREDNISOLONE
     Dosage: 21 MG, 7 MILLILITER,MONDAY TO FRIDAY
     Route: 048
  7. ORAPRED [Concomitant]
     Active Substance: PREDNISOLONE SODIUM PHOSPHATE
     Indication: Product used for unknown indication
     Dosage: 7 MILLILITER, EVERY WEEK DAY
  8. ORAPRED [Concomitant]
     Active Substance: PREDNISOLONE SODIUM PHOSPHATE
     Dosage: 34 MILLILITER, SATURDAY AND SUNDAY

REACTIONS (8)
  - White blood cell count decreased [Recovered/Resolved]
  - Complement factor C4 decreased [Recovering/Resolving]
  - Total complement activity increased [Unknown]
  - Blood creatine phosphokinase decreased [Not Recovered/Not Resolved]
  - Blood creatine phosphokinase increased [Not Recovered/Not Resolved]
  - Platelet count decreased [Recovered/Resolved]
  - Nausea [Recovered/Resolved]
  - Vomiting [Recovered/Resolved]

NARRATIVE: CASE EVENT DATE: 20240101
